FAERS Safety Report 12946752 (Version 1)
Quarter: 2016Q4

REPORT INFORMATION
  Report Type: Spontaneous
  Country: CH (occurrence: CH)
  Receive Date: 20161116
  Receipt Date: 20161116
  Transmission Date: 20170207
  Serious: Yes (Death, Hospitalization, Other)
  Sender: FDA-Public Use
  Company Number: PHHY2016CH154842

PATIENT
  Age: 65 Year
  Sex: Male

DRUGS (6)
  1. TORASEMIDE [Concomitant]
     Active Substance: TORSEMIDE
     Indication: PRODUCT USED FOR UNKNOWN INDICATION
     Route: 065
  2. ZOLPIDEM [Suspect]
     Active Substance: ZOLPIDEM\ZOLPIDEM TARTRATE
     Indication: PRODUCT USED FOR UNKNOWN INDICATION
     Route: 065
  3. RIFAMPICIN [Suspect]
     Active Substance: RIFAMPIN
     Indication: STAPHYLOCOCCAL INFECTION
     Dosage: 300 MG, TID
     Route: 065
     Dates: start: 20160903, end: 20160907
  4. ATORVASTATIN [Concomitant]
     Active Substance: ATORVASTATIN
     Indication: PRODUCT USED FOR UNKNOWN INDICATION
     Dosage: 40 MG, UNK
     Route: 065
  5. HEPARIN [Concomitant]
     Active Substance: HEPARIN SODIUM
     Indication: PRODUCT USED FOR UNKNOWN INDICATION
     Route: 065
  6. APIXABAN [Interacting]
     Active Substance: APIXABAN
     Indication: RENAL IMPAIRMENT
     Dosage: 5 MG, BID
     Route: 048

REACTIONS (15)
  - Cardiac failure [Fatal]
  - Hepatic failure [Fatal]
  - Acute kidney injury [Fatal]
  - Drug interaction [Unknown]
  - Head injury [Fatal]
  - Epistaxis [Fatal]
  - Gastrointestinal haemorrhage [Fatal]
  - Haematuria [Fatal]
  - Fall [Fatal]
  - Septic shock [Fatal]
  - Staphylococcal infection [Fatal]
  - Delirium [Fatal]
  - Gout [Fatal]
  - Pulmonary oedema [Fatal]
  - Dyspnoea exertional [Fatal]

NARRATIVE: CASE EVENT DATE: 20160815
